FAERS Safety Report 8701861 (Version 2)
Quarter: 2012Q4

REPORT INFORMATION
  Report Type: Report from Study
  Country: DE (occurrence: DE)
  Receive Date: 20120803
  Receipt Date: 20120904
  Transmission Date: 20130627
  Serious: Yes (Hospitalization, Other)
  Sender: FDA-Public Use
  Company Number: DE-US-EMD SERONO, INC.-7149682

PATIENT
  Age: 46 Year
  Sex: Female

DRUGS (2)
  1. REBIF [Suspect]
     Indication: MULTIPLE SCLEROSIS
     Route: 058
     Dates: start: 200912
  2. CORTISONE [Suspect]
     Indication: MULTIPLE SCLEROSIS RELAPSE
     Route: 048
     Dates: start: 20120627, end: 20120701

REACTIONS (7)
  - Heart rate decreased [Recovered/Resolved]
  - Pulmonary oedema [Recovering/Resolving]
  - Multiple sclerosis relapse [Unknown]
  - Arrhythmia [Recovering/Resolving]
  - Hypokalaemia [Recovering/Resolving]
  - Influenza [Recovering/Resolving]
  - Liver function test abnormal [Recovering/Resolving]
